FAERS Safety Report 6648833-5 (Version None)
Quarter: 2010Q1

REPORT INFORMATION
  Report Type: 
  Country: None (occurrence: None)
  Receive Date: 20100324
  Receipt Date: 20100315
  Transmission Date: 20100710
  Serious: Yes (Hospitalization)
  Sender: FDA-Public Use
  Company Number: PHHY2010JP06144

PATIENT
  Age: 89 Year
  Sex: Female

DRUGS (2)
  1. SANDOSTATIN LAR [Suspect]
     Indication: INSULINOMA
     Dosage: 10 MG DAILY
     Route: 030
     Dates: start: 20091201
  2. SANDOSTATIN LAR [Suspect]
     Dosage: 20 MG DAILY
     Route: 030
     Dates: end: 20100101

REACTIONS (2)
  - BLOOD GLUCOSE DECREASED [None]
  - HYPOTHERMIA [None]
